FAERS Safety Report 7242991-X (Version None)
Quarter: 2011Q1

REPORT INFORMATION
  Report Type: 
  Country: None (occurrence: None)
  Receive Date: 20110125
  Receipt Date: 20110119
  Transmission Date: 20110831
  Serious: Yes (Other)
  Sender: FDA-Public Use
  Company Number: US-JNJFOC-20110105267

PATIENT
  Sex: Male
  Weight: 112.49 kg

DRUGS (3)
  1. ELIGARD [Concomitant]
     Indication: PROSTATE CANCER
     Route: 065
  2. DURAGESIC-50 [Suspect]
     Indication: PROSTATE CANCER
     Route: 062
  3. METFORMIN HCL [Concomitant]
     Indication: BLOOD GLUCOSE ABNORMAL
     Route: 048

REACTIONS (1)
  - BLOOD GLUCOSE INCREASED [None]
